FAERS Safety Report 5933136-4 (Version None)
Quarter: 2008Q4

REPORT INFORMATION
  Report Type: 
  Country: None (occurrence: None)
  Receive Date: 20081023
  Receipt Date: 20060811
  Transmission Date: 20090506
  Serious: Yes (Congenital Anomaly, Other)
  Sender: FDA-Public Use
  Company Number: 2006AL002511

PATIENT
  Sex: Female

DRUGS (1)
  1. FLUOXETINE [Suspect]
     Indication: DEPRESSION
     Dosage: 20 MG;QD;TRPL
     Route: 064
     Dates: start: 20040521, end: 20040801

REACTIONS (5)
  - ANTERIOR CHAMBER CLEAVAGE SYNDROME [None]
  - CONGENITAL EYE DISORDER [None]
  - CONGENITAL MULTIPLEX ARTHROGRYPOSIS [None]
  - DRUG EXPOSURE DURING PREGNANCY [None]
  - MATERNAL DRUGS AFFECTING FOETUS [None]
